FAERS Safety Report 24233391 (Version 1)
Quarter: 2024Q3

REPORT INFORMATION
  Report Type: Spontaneous
  Country: US (occurrence: US)
  Receive Date: 20240821
  Receipt Date: 20240821
  Transmission Date: 20241017
  Serious: No
  Sender: SANOFI AVENTIS
  Company Number: US-SA-SAC20240814001135

PATIENT
  Age: 55 Year
  Sex: Male

DRUGS (2)
  1. ELOCTATE [Suspect]
     Active Substance: EFMOROCTOCOG ALFA
     Indication: Haemarthrosis
     Dosage: 1570/3140 UNITS (+/- 10%) AS NEEDED (PRN) FOR MAJOR BLEEDS
     Route: 042
  2. ELOCTATE [Suspect]
     Active Substance: EFMOROCTOCOG ALFA
     Indication: Haemarthrosis
     Dosage: 1570/3140 UNITS (+/- 10%) AS NEEDED (PRN) FOR MAJOR BLEEDS
     Route: 042

REACTIONS (2)
  - Haemorrhage [Recovered/Resolved]
  - Joint injury [Unknown]

NARRATIVE: CASE EVENT DATE: 20240808
